FAERS Safety Report 10764793 (Version 2)
Quarter: 2015Q1

REPORT INFORMATION
  Report Type: Spontaneous
  Country: US (occurrence: None)
  Receive Date: 20150203
  Receipt Date: 20150220
  Transmission Date: 20150721
  Serious: Yes (Hospitalization)
  Sender: FDA-Public Use
  Company Number: 150022

PATIENT
  Age: 48 Year
  Sex: Male
  Weight: 130.18 kg

DRUGS (3)
  1. HCTZ [Concomitant]
     Active Substance: HYDROCHLOROTHIAZIDE
  2. BISOPROLOL [Concomitant]
     Active Substance: BISOPROLOL
  3. SUPREP BOWEL PREP [Suspect]
     Active Substance: MAGNESIUM SULFATE\POTASSIUM SULFATE\SODIUM SULFATE
     Indication: COLONOSCOPY
     Dosage: 2 X 6 OZ. BOTTLE 1X PO
     Route: 048
     Dates: start: 20150125, end: 20150126

REACTIONS (4)
  - Hospitalisation [None]
  - Atrioventricular block complete [None]
  - Syncope [None]
  - Palpitations [None]

NARRATIVE: CASE EVENT DATE: 20150126
